FAERS Safety Report 7535297-2 (Version None)
Quarter: 2011Q2

REPORT INFORMATION
  Report Type: 
  Country: None (occurrence: None)
  Receive Date: 20110609
  Receipt Date: 20080110
  Transmission Date: 20111010
  Serious: Yes (Hospitalization)
  Sender: FDA-Public Use
  Company Number: PHHY2008BE00621

PATIENT

DRUGS (1)
  1. DIOVAN [Suspect]
     Dosage: UNK

REACTIONS (1)
  - MENTAL DISORDER [None]
